FAERS Safety Report 25062409 (Version 1)
Quarter: 2025Q1

REPORT INFORMATION
  Report Type: Spontaneous
  Country: FR (occurrence: FR)
  Receive Date: 20250311
  Receipt Date: 20250311
  Transmission Date: 20250408
  Serious: Yes (Hospitalization, Other)
  Sender: ALEXION PHARMACEUTICALS
  Company Number: FR-AstraZeneca-CH-00819873A

PATIENT
  Age: 66 Year

DRUGS (1)
  1. IMFINZI [Suspect]
     Active Substance: DURVALUMAB
     Indication: Bile duct cancer

REACTIONS (4)
  - Pleural effusion [Recovering/Resolving]
  - Salivary hyposecretion [Recovering/Resolving]
  - Hypothyroidism [Recovering/Resolving]
  - Diarrhoea [Recovering/Resolving]
